FAERS Safety Report 4712559-5 (Version None)
Quarter: 2005Q3

REPORT INFORMATION
  Report Type: 
  Country: None (occurrence: None)
  Receive Date: 20050711
  Receipt Date: 20050630
  Transmission Date: 20060218
  Serious: Yes (Other)
  Sender: FDA-Public Use
  Company Number: US015401

PATIENT
  Age: 47 Year
  Sex: Female

DRUGS (12)
  1. GABITRIL [Suspect]
     Indication: AFFECTIVE DISORDER
     Dosage: 1 MG QHS ORAL
     Route: 048
     Dates: start: 20040426, end: 20040502
  2. GABITRIL [Suspect]
     Indication: AFFECTIVE DISORDER
     Dosage: 2 MG BID ORAL
     Route: 048
     Dates: start: 20040503, end: 20040509
  3. GABITRIL [Suspect]
     Indication: AFFECTIVE DISORDER
     Dosage: 6 MG DAILY ORAL
     Route: 048
     Dates: start: 20040510, end: 20040516
  4. GABITRIL [Suspect]
     Indication: AFFECTIVE DISORDER
     Dosage: 4 MG BID ORAL
     Route: 048
     Dates: start: 20050517
  5. GABITRIL [Suspect]
     Indication: AFFECTIVE DISORDER
     Dosage: 16 MG DAILY ORAL
     Route: 048
     Dates: start: 20041001, end: 20050330
  6. WELLBUTRIN XL [Concomitant]
  7. GEODON [Concomitant]
  8. TOPAMAX [Concomitant]
  9. TRILAFON [Concomitant]
  10. EFFEXOR XR [Concomitant]
  11. XANAX [Concomitant]
  12. CONCERTA [Concomitant]

REACTIONS (6)
  - ABNORMAL BEHAVIOUR [None]
  - CONFUSIONAL STATE [None]
  - CONVULSION [None]
  - PETIT MAL EPILEPSY [None]
  - REPETITIVE SPEECH [None]
  - TREMOR [None]
